FAERS Safety Report 18953575 (Version 1)
Quarter: 2021Q1

REPORT INFORMATION
  Report Type: Spontaneous
  Country: US (occurrence: US)
  Receive Date: 20210301
  Receipt Date: 20210301
  Transmission Date: 20210420
  Serious: No
  Sender: FDA-Public Use
  Company Number: None

PATIENT
  Age: 48 Year
  Sex: Male

DRUGS (8)
  1. DEXAMETHASONE. [Concomitant]
     Active Substance: DEXAMETHASONE
  2. OXALIPLATIN. [Concomitant]
     Active Substance: OXALIPLATIN
  3. MULTIVITAMIN [Concomitant]
     Active Substance: VITAMINS
  4. FYCOMPA [Concomitant]
     Active Substance: PERAMPANEL
  5. APTIOM [Concomitant]
     Active Substance: ESLICARBAZEPINE ACETATE
  6. CAPECITABINE 500MG [Suspect]
     Active Substance: CAPECITABINE
     Indication: COLON CANCER
     Dosage: FREQUENCY: 1WK ON, 1 WK OFF
     Route: 048
  7. ONDANSETRON [Concomitant]
     Active Substance: ONDANSETRON
  8. LYRICA [Concomitant]
     Active Substance: PREGABALIN

REACTIONS (1)
  - Seizure [None]
